FAERS Safety Report 12937609 (Version 2)
Quarter: 2017Q1

REPORT INFORMATION
  Report Type: Spontaneous
  Country: AU (occurrence: AU)
  Receive Date: 20161114
  Receipt Date: 20170209
  Transmission Date: 20170428
  Serious: Yes (Hospitalization, Other)
  Sender: FDA-Public Use
  Company Number: AU-REGENERON PHARMACEUTICALS, INC.-2016-23702

PATIENT

DRUGS (1)
  1. EYLEA [Suspect]
     Active Substance: AFLIBERCEPT
     Indication: AGE-RELATED MACULAR DEGENERATION
     Dosage: FREQUENCY 12/52
     Route: 031
     Dates: start: 20121210

REACTIONS (1)
  - Blindness [Not Recovered/Not Resolved]

NARRATIVE: CASE EVENT DATE: 20161028
